FAERS Safety Report 6251061-9 (Version None)
Quarter: 2009Q2

REPORT INFORMATION
  Report Type: 
  Country: None (occurrence: None)
  Receive Date: 20090630
  Receipt Date: 20090518
  Transmission Date: 20091009
  Serious: No
  Sender: FDA-Public Use
  Company Number: US-ABBOTT-09P-163-0563487-00

PATIENT
  Sex: Female
  Weight: 68.1 kg

DRUGS (11)
  1. ZEMPLAR [Suspect]
     Indication: DRUG USE FOR UNKNOWN INDICATION
     Dates: start: 20080602, end: 20081101
  2. ZEMPLAR [Suspect]
     Dates: start: 20081101, end: 20090101
  3. ZEMPLAR [Suspect]
     Dates: start: 20090101
  4. TRANDATE [Concomitant]
     Indication: HYPERTENSION
  5. LASIX [Concomitant]
     Indication: HYPERTENSION
  6. PRINIVIL [Concomitant]
     Indication: HYPERTENSION
  7. PROCRIT [Concomitant]
     Indication: ANAEMIA
  8. VITAMIN D [Concomitant]
     Indication: DRUG USE FOR UNKNOWN INDICATION
  9. LISINOPRIL [Concomitant]
     Indication: DRUG USE FOR UNKNOWN INDICATION
  10. AMLODIPINE [Concomitant]
     Indication: DRUG USE FOR UNKNOWN INDICATION
  11. LABETALOL HCL [Concomitant]
     Indication: DRUG USE FOR UNKNOWN INDICATION

REACTIONS (4)
  - BLOOD CALCIUM INCREASED [None]
  - COUGH [None]
  - OEDEMA PERIPHERAL [None]
  - SINUS CONGESTION [None]
